FAERS Safety Report 8922747 (Version 1)
Quarter: 2012Q4

REPORT INFORMATION
  Report Type: 
  Country: US (occurrence: US)
  Receive Date: 20121123
  Receipt Date: 20121123
  Transmission Date: 20130627
  Serious: Yes (Other)
  Sender: FDA-Public Use
  Company Number: US-BRISTOL-MYERS SQUIBB COMPANY-17122250

PATIENT
  Age: 66 Year
  Sex: Female

DRUGS (1)
  1. TRIAMCINOLONE ACETONIDE [Suspect]
     Indication: LUMBAR RADICULOPATHY
     Dosage: injections, 1DF:30mg,40mg

REACTIONS (2)
  - Uterine haemorrhage [Recovered/Resolved]
  - Endometrial hyperplasia [None]
